FAERS Safety Report 24226589 (Version 1)
Quarter: 2024Q3

REPORT INFORMATION
  Report Type: Spontaneous
  Country: US (occurrence: None)
  Receive Date: 20240819
  Receipt Date: 20240819
  Transmission Date: 20241017
  Serious: Yes (Death)
  Sender: Public
  Company Number: None

PATIENT
  Age: 75 Year
  Sex: Female
  Weight: 61 kg

DRUGS (1)
  1. LEQEMBI [Suspect]
     Active Substance: LECANEMAB-IRMB
     Indication: Dementia Alzheimer^s type
     Dates: start: 20240509, end: 20240626

REACTIONS (13)
  - Confusional state [None]
  - Aphasia [None]
  - Infusion related reaction [None]
  - Loss of consciousness [None]
  - Seizure [None]
  - Vasogenic cerebral oedema [None]
  - Status epilepticus [None]
  - Acute kidney injury [None]
  - Metabolic acidosis [None]
  - Sepsis [None]
  - Organ failure [None]
  - Amyloid related imaging abnormality-microhaemorrhages and haemosiderin deposits [None]
  - Amyloid related imaging abnormality-oedema/effusion [None]

NARRATIVE: CASE EVENT DATE: 20240705
